FAERS Safety Report 14427795 (Version 3)
Quarter: 2018Q1

REPORT INFORMATION
  Report Type: Report from Study
  Country: DE (occurrence: DE)
  Receive Date: 20180123
  Receipt Date: 20180123
  Transmission Date: 20180509
  Serious: Yes (Other)
  Sender: FDA-Public Use
  Company Number: PHHY2018DE010401

PATIENT
  Age: 51 Year
  Sex: Male

DRUGS (8)
  1. GENERIC DICLOFENAC [Suspect]
     Active Substance: DICLOFENAC
     Indication: PRODUCT USED FOR UNKNOWN INDICATION
     Dosage: UNK
     Route: 065
  2. TERIPARATIDE [Suspect]
     Active Substance: TERIPARATIDE
     Dosage: UNK UNK, QD
     Route: 058
     Dates: start: 20160610, end: 20160626
  3. GENERIC DICLOFENAC [Suspect]
     Active Substance: DICLOFENAC
     Dosage: DOSE INCREASED
     Route: 065
  4. TERIPARATIDE [Suspect]
     Active Substance: TERIPARATIDE
     Indication: OSTEOPOROSIS
     Dosage: UNK UNK, QD
     Route: 058
  5. CALCIUM [Concomitant]
     Active Substance: CALCIUM
     Indication: PRODUCT USED FOR UNKNOWN INDICATION
     Route: 065
  6. GENERIC DICLOFENAC [Suspect]
     Active Substance: DICLOFENAC
     Dosage: DOSE CHANGED
     Route: 065
     Dates: start: 201606
  7. LEFLUNOMIDA [Concomitant]
     Active Substance: LEFLUNOMIDE
     Indication: PRODUCT USED FOR UNKNOWN INDICATION
     Route: 065
  8. TERIPARATIDE [Suspect]
     Active Substance: TERIPARATIDE
     Dosage: UNK UNK, QD
     Route: 058

REACTIONS (15)
  - Renal pain [Recovering/Resolving]
  - Hypoaesthesia [Not Recovered/Not Resolved]
  - Bronchitis [Recovered/Resolved]
  - Pain in extremity [Recovering/Resolving]
  - Abdominal pain [Recovered/Resolved]
  - Hepatic pain [Recovering/Resolving]
  - Sleep disorder [Not Recovered/Not Resolved]
  - Spinal fracture [Recovered/Resolved]
  - Inflammation [Recovering/Resolving]
  - Rheumatoid arthritis [Not Recovered/Not Resolved]
  - Peripheral coldness [Unknown]
  - Diarrhoea [Unknown]
  - Mobility decreased [Not Recovered/Not Resolved]
  - Haemorrhoids thrombosed [Recovering/Resolving]
  - Peripheral coldness [Not Recovered/Not Resolved]

NARRATIVE: CASE EVENT DATE: 201606
